FAERS Safety Report 19139925 (Version 1)
Quarter: 2021Q2

REPORT INFORMATION
  Report Type: Spontaneous
  Country: US (occurrence: US)
  Receive Date: 20210415
  Receipt Date: 20210415
  Transmission Date: 20210717
  Serious: Yes (Other)
  Sender: FDA-Public Use
  Company Number: None

PATIENT
  Age: 33 Year
  Sex: Female
  Weight: 79.38 kg

DRUGS (28)
  1. ARIPIPRAZOLE. [Concomitant]
     Active Substance: ARIPIPRAZOLE
  2. LACTASE ENZYME [Concomitant]
     Active Substance: LACTASE
  3. ACETAMINOPHEN. [Concomitant]
     Active Substance: ACETAMINOPHEN
  4. CONTOUR NEXT TEST STRIPS [Concomitant]
  5. PRAZOSIN. [Concomitant]
     Active Substance: PRAZOSIN
  6. FLEXERIL [Suspect]
     Active Substance: CYCLOBENZAPRINE HYDROCHLORIDE
     Route: 048
     Dates: start: 2014, end: 2014
  7. BAYER CONTOUR NEXT EZ METER [Concomitant]
  8. GLYCOPYRROLATE. [Concomitant]
     Active Substance: GLYCOPYRROLATE
  9. HYDROXYZINE [Concomitant]
     Active Substance: HYDROXYZINE HYDROCHLORIDE
  10. APIXABAN [Concomitant]
     Active Substance: APIXABAN
  11. ATORVASTATIN [Concomitant]
     Active Substance: ATORVASTATIN
  12. BASAGLAR [Concomitant]
     Active Substance: INSULIN GLARGINE
  13. METFORMIN [Concomitant]
     Active Substance: METFORMIN HYDROCHLORIDE
  14. NON?FORMULARY MEDICATION [Concomitant]
  15. OMEPRAZOLE. [Concomitant]
     Active Substance: OMEPRAZOLE
  16. AMPHETAMINE?DEXTROAMPHINE (ADDERALL XR) [Concomitant]
  17. INSULIN ASPART FLEXPEN [Concomitant]
     Active Substance: INSULIN ASPART
  18. METHIMAZOLE. [Concomitant]
     Active Substance: METHIMAZOLE
  19. OLANZAPINE. [Concomitant]
     Active Substance: OLANZAPINE
  20. RIZATRIPTAN. [Concomitant]
     Active Substance: RIZATRIPTAN
  21. CLONAZEPAM. [Concomitant]
     Active Substance: CLONAZEPAM
  22. TRUEPLUS LANCETS [Concomitant]
  23. B?D U/F PEN NEEDLE [Concomitant]
  24. FLUOXETINE [Concomitant]
     Active Substance: FLUOXETINE HYDROCHLORIDE
  25. GABAPENTIN. [Concomitant]
     Active Substance: GABAPENTIN
  26. MIRTAZAPINE. [Concomitant]
     Active Substance: MIRTAZAPINE
  27. TRIAMCINOLONE ACETONIDE. [Concomitant]
     Active Substance: TRIAMCINOLONE ACETONIDE
  28. PROPRANOLOL [Concomitant]
     Active Substance: PROPRANOLOL HYDROCHLORIDE

REACTIONS (1)
  - Paralysis [None]

NARRATIVE: CASE EVENT DATE: 2014
